FAERS Safety Report 25545409 (Version 1)
Quarter: 2025Q3

REPORT INFORMATION
  Report Type: Spontaneous
  Country: CH (occurrence: CH)
  Receive Date: 20250711
  Receipt Date: 20250711
  Transmission Date: 20251021
  Serious: Yes (Hospitalization, Other)
  Sender: PFIZER
  Company Number: None

PATIENT
  Age: 75 Year
  Sex: Female
  Weight: 57.9 kg

DRUGS (14)
  1. METHYLPREDNISOLONE [Suspect]
     Active Substance: METHYLPREDNISOLONE
  2. PEMETREXED [Suspect]
     Active Substance: PEMETREXED
  3. KEYTRUDA [Suspect]
     Active Substance: PEMBROLIZUMAB
  4. CARBOPLATIN [Suspect]
     Active Substance: CARBOPLATIN
  5. DEXAMETHASONE [Concomitant]
     Active Substance: DEXAMETHASONE
  6. CANDESARTAN [Concomitant]
     Active Substance: CANDESARTAN
  7. SYMBICORT [Concomitant]
     Active Substance: BUDESONIDE\FORMOTEROL FUMARATE DIHYDRATE
  8. SODIUM PICOSULFATE [Concomitant]
     Active Substance: SODIUM PICOSULFATE
  9. MAGNESIUM ASPARTATE HYDROCHLORIDE [Concomitant]
     Active Substance: MAGNESIUM ASPARTATE HYDROCHLORIDE
  10. MOTILIUM [Concomitant]
     Active Substance: DOMPERIDONE
  11. XARELTO [Concomitant]
     Active Substance: RIVAROXABAN
  12. TORSEMIDE [Concomitant]
     Active Substance: TORSEMIDE
  13. ROSUVASTATIN CALCIUM [Concomitant]
     Active Substance: ROSUVASTATIN CALCIUM
  14. NEBIVOLOL AXAPHARM [Concomitant]

REACTIONS (3)
  - Septic shock [Recovering/Resolving]
  - Pancytopenia [Recovering/Resolving]
  - Neutropenic colitis [Recovering/Resolving]

NARRATIVE: CASE EVENT DATE: 20250608
